FAERS Safety Report 9486121 (Version 2)
Quarter: 2013Q3

REPORT INFORMATION
  Report Type: Spontaneous
  Country: US (occurrence: None)
  Receive Date: 20130823
  Receipt Date: 20130911
  Transmission Date: 20140515
  Serious: Yes (Hospitalization, Other)
  Sender: FDA-Public Use
  Company Number: ADR-2013-01398

PATIENT
  Age: 45 Year
  Sex: Male

DRUGS (1)
  1. BACLOFEN INTRATHECAL [Suspect]
     Indication: MUSCLE SPASTICITY

REACTIONS (10)
  - Underdose [None]
  - Hallucination [None]
  - Slow speech [None]
  - Rash [None]
  - Tachycardia [None]
  - Fall [None]
  - Drug withdrawal syndrome [None]
  - Overdose [None]
  - Agitation [None]
  - Convulsion [None]
